FAERS Safety Report 6167280-6 (Version None)
Quarter: 2009Q2

REPORT INFORMATION
  Report Type: 
  Country: None (occurrence: None)
  Receive Date: 20090424
  Receipt Date: 20090414
  Transmission Date: 20091009
  Serious: Yes (Other)
  Sender: FDA-Public Use
  Company Number: US-JNJCH-2009010483

PATIENT
  Age: 62 Year
  Sex: Female
  Weight: 104.3 kg

DRUGS (2)
  1. NATURAL CITRUS LISTERINE [Suspect]
     Indication: DENTAL DISORDER PROPHYLAXIS
     Dosage: TEXT:UNSPECIFIED
     Route: 048
  2. LISTERINE WHITENING PRE-BRUSH RINSE [Suspect]
     Indication: DRUG USE FOR UNKNOWN INDICATION
     Dosage: TEXT:UNSPECIFIED
     Route: 048

REACTIONS (4)
  - APPLICATION SITE BURN [None]
  - PARAESTHESIA [None]
  - TONGUE DISORDER [None]
  - TONGUE EXFOLIATION [None]
